FAERS Safety Report 4413381-X (Version None)
Quarter: 2004Q3

REPORT INFORMATION
  Report Type: 
  Country: None (occurrence: None)
  Receive Date: 20040728
  Receipt Date: 20040716
  Transmission Date: 20050211
  Serious: Yes (Hospitalization)
  Sender: FDA-Public Use
  Company Number: 2003152715FR

PATIENT
  Age: 11 Year
  Sex: Female
  Weight: 20 kg

DRUGS (4)
  1. SOLU-MEDROL [Suspect]
     Dates: start: 20030201, end: 20030205
  2. ONDANSETRON HYDROCHLORIDE [Suspect]
     Dosage: IV
     Route: 042
     Dates: start: 20030201, end: 20030205
  3. METHOTREXATE [Suspect]
     Dosage: 11 G, CYCLIC, IV
     Route: 042
     Dates: start: 20020628, end: 20030204
  4. ZELITREX (VALACICLOVIR) [Suspect]
     Dosage: 4 DF, ORAL
     Route: 048
     Dates: start: 20030202, end: 20030204

REACTIONS (9)
  - BRADYPHRENIA [None]
  - CONFUSIONAL STATE [None]
  - DEMYELINATION [None]
  - DISORIENTATION [None]
  - DRUG LEVEL INCREASED [None]
  - MICTURITION DISORDER [None]
  - NAUSEA [None]
  - NUCLEAR MAGNETIC RESONANCE IMAGING ABNORMAL [None]
  - VOMITING [None]
